FAERS Safety Report 15757846 (Version 1)
Quarter: 2018Q4

REPORT INFORMATION
  Report Type: Spontaneous
  Country: US (occurrence: US)
  Receive Date: 20181225
  Receipt Date: 20181225
  Transmission Date: 20190205
  Serious: Yes (Other)
  Sender: FDA-Public Use
  Company Number: US-ROCHE-2234282

PATIENT
  Age: 44 Year
  Sex: Female
  Weight: 61.5 kg

DRUGS (15)
  1. CLARITIN [Concomitant]
     Active Substance: LORATADINE
     Indication: BONE PAIN
     Route: 048
  2. AVASTIN [Suspect]
     Active Substance: BEVACIZUMAB
     Indication: OVARIAN CANCER
     Dosage: 3 CYCLES
     Route: 065
     Dates: start: 201307, end: 2013
  3. PROCHLORPERAZINE. [Concomitant]
     Active Substance: PROCHLORPERAZINE
     Indication: NAUSEA
     Dosage: AS NEEDED
     Route: 048
  4. PACLITAXEL. [Suspect]
     Active Substance: PACLITAXEL
     Indication: OVARIAN CANCER
     Dosage: 3 CYCLES
     Route: 065
     Dates: start: 201307, end: 2013
  5. LEVOTHYROXINE. [Concomitant]
     Active Substance: LEVOTHYROXINE
     Dosage: DAILY
     Route: 065
  6. PROTONIX (OMEPRAZOLE) [Concomitant]
     Active Substance: OMEPRAZOLE
     Route: 048
  7. CARBOPLATIN. [Suspect]
     Active Substance: CARBOPLATIN
     Indication: OVARIAN CANCER
     Dosage: 3 CYCLES
     Route: 065
     Dates: start: 201307, end: 2013
  8. CARBOPLATIN. [Suspect]
     Active Substance: CARBOPLATIN
     Dosage: 3 CYCLES
     Route: 065
     Dates: start: 201706, end: 2017
  9. RUCAPARIB [Concomitant]
     Active Substance: RUCAPARIB
     Route: 065
     Dates: start: 201802
  10. MEKINIST [Concomitant]
     Active Substance: TRAMETINIB DIMETHYL SULFOXIDE
     Route: 065
     Dates: start: 201810
  11. COLACE [Concomitant]
     Active Substance: DOCUSATE SODIUM
     Indication: CONSTIPATION
     Route: 048
  12. TAMOXIFEN [Concomitant]
     Active Substance: TAMOXIFEN
     Route: 048
  13. METHIMAZOLE. [Concomitant]
     Active Substance: METHIMAZOLE
     Dosage: DAILY
     Route: 065
  14. LETROZOLE. [Concomitant]
     Active Substance: LETROZOLE
     Route: 048
  15. ONDANSETRON [Concomitant]
     Active Substance: ONDANSETRON
     Dosage: AS NEEDED
     Route: 048

REACTIONS (14)
  - Weight increased [Unknown]
  - Palpitations [Recovered/Resolved]
  - Rash [Unknown]
  - Dyspnoea exertional [Recovered/Resolved]
  - Aspartate aminotransferase increased [Recovered/Resolved]
  - Dizziness [Recovered/Resolved]
  - Vaginal haemorrhage [Unknown]
  - Recurrent cancer [Unknown]
  - Fatigue [Not Recovered/Not Resolved]
  - Hypothyroidism [Not Recovered/Not Resolved]
  - Hyperthyroidism [Recovered/Resolved]
  - Oropharyngeal pain [Recovered/Resolved]
  - Thyroid function test abnormal [Unknown]
  - Alanine aminotransferase increased [Recovered/Resolved]

NARRATIVE: CASE EVENT DATE: 201412
